APPROVED DRUG PRODUCT: GENTAMICIN SULFATE
Active Ingredient: GENTAMICIN SULFATE
Strength: EQ 0.1% BASE
Dosage Form/Route: CREAM;TOPICAL
Application: A062307 | Product #001 | TE Code: AT
Applicant: PADAGIS US LLC
Approved: Approved Prior to Jan 1, 1982 | RLD: No | RS: Yes | Type: RX